FAERS Safety Report 9626462 (Version 6)
Quarter: 2014Q1

REPORT INFORMATION
  Report Type: Spontaneous
  Country: US (occurrence: US)
  Receive Date: 20131016
  Receipt Date: 20140108
  Transmission Date: 20141002
  Serious: Yes (Death, Hospitalization, Other)
  Sender: FDA-Public Use
  Company Number: US-GILEAD-2013-0084767

PATIENT
  Sex: Female
  Weight: 58.5 kg

DRUGS (5)
  1. LETAIRIS [Suspect]
     Indication: PULMONARY HYPERTENSION
     Dosage: 10 MG, QD
     Route: 048
     Dates: start: 20110909, end: 20131120
  2. LETAIRIS [Suspect]
     Indication: SCLERODERMA
     Dosage: 5 MG, QD
     Route: 048
     Dates: start: 20100120
  3. SILDENAFIL [Concomitant]
  4. TRACLEER                           /01587701/ [Concomitant]
  5. REMODULIN [Concomitant]

REACTIONS (3)
  - Cardiac arrest [Fatal]
  - Lung transplant [Unknown]
  - Nasopharyngitis [Unknown]
